FAERS Safety Report 5609603-X (Version None)
Quarter: 2008Q1

REPORT INFORMATION
  Report Type: 
  Country: None (occurrence: None)
  Receive Date: 20080131
  Receipt Date: 20080108
  Transmission Date: 20080703
  Serious: No
  Sender: FDA-Public Use
  Company Number: US-BOEHRINGER INGELHEIM GMBH, GERMANY-2007-BP-26180BP

PATIENT
  Sex: Female

DRUGS (22)
  1. MIRAPEX [Suspect]
     Indication: RESTLESS LEGS SYNDROME
     Route: 048
     Dates: start: 20071126
  2. LITHIUM CARBONATE [Concomitant]
     Indication: BIPOLAR DISORDER
  3. ACCOLATE [Concomitant]
     Indication: ASTHMA
  4. ACTOSE [Concomitant]
     Indication: DIABETES MELLITUS
  5. ASPIRIN [Concomitant]
     Indication: PROPHYLAXIS
  6. BENICAR [Concomitant]
     Indication: BLOOD CHOLESTEROL INCREASED
  7. CRESTOR [Concomitant]
     Indication: BLOOD CHOLESTEROL INCREASED
  8. DARVOCET [Concomitant]
     Indication: MUSCULOSKELETAL PAIN
  9. GEMFIBROZIL [Concomitant]
     Indication: DYSPEPSIA
  10. LANTUS [Concomitant]
     Indication: DIABETES MELLITUS
  11. LEVOTHYROXINE SODIUM [Concomitant]
     Indication: THYROID DISORDER
  12. RANITIDINE [Concomitant]
  13. METFORMIN HCL [Concomitant]
  14. MIRTAZAPAM [Concomitant]
     Indication: BIPOLAR DISORDER
  15. INSULIN [Concomitant]
     Indication: DIABETES MELLITUS
  16. PRIMIDINE [Concomitant]
     Indication: TREMOR
  17. SKELAXIN [Concomitant]
  18. TRAZODONE HCL [Concomitant]
     Indication: SLEEP DISORDER
  19. WELLBUTRIN [Concomitant]
     Indication: BIPOLAR DISORDER
  20. PROTONIX [Concomitant]
  21. IBUPROFEN [Concomitant]
  22. NOVOLIN R [Concomitant]

REACTIONS (3)
  - DRUG EFFECT DECREASED [None]
  - DRUG INEFFECTIVE [None]
  - PAIN IN EXTREMITY [None]
